FAERS Safety Report 6235477-2 (Version None)
Quarter: 2009Q2

REPORT INFORMATION
  Report Type: 
  Country: None (occurrence: None)
  Receive Date: 20090618
  Receipt Date: 20080424
  Transmission Date: 20091009
  Serious: No
  Sender: FDA-Public Use
  Company Number: US-ASTRAZENECA-2008UW08409

PATIENT
  Sex: Female

DRUGS (2)
  1. RHINOCORT [Suspect]
     Indication: RHINITIS ALLERGIC
     Route: 045
  2. ASTELIN [Concomitant]

REACTIONS (2)
  - ANXIETY [None]
  - FEELING JITTERY [None]
